FAERS Safety Report 8378358-0 (Version None)
Quarter: 2012Q2

REPORT INFORMATION
  Report Type: 
  Country: None (occurrence: None)
  Receive Date: 20120522
  Receipt Date: 20120514
  Transmission Date: 20120825
  Serious: Yes (Other)
  Sender: FDA-Public Use
  Company Number: US-ELI_LILLY_AND_COMPANY-US201205006391

PATIENT
  Sex: Male

DRUGS (4)
  1. HUMALOG MIX 75/25 [Suspect]
     Indication: DIABETES MELLITUS
     Dosage: 12 U, BID
     Dates: start: 20090101
  2. LISINOPRIL [Concomitant]
     Dosage: 5 MG, QD
  3. LEVEMIR [Concomitant]
     Dosage: 50 U, EACH EVENING
  4. LEVEMIR [Concomitant]
     Dosage: 55 U, EACH MORNING

REACTIONS (7)
  - BLINDNESS TRANSIENT [None]
  - BLOOD PRESSURE INCREASED [None]
  - EAR DISORDER [None]
  - CATARACT [None]
  - HEART RATE INCREASED [None]
  - VITRECTOMY [None]
  - EYE HAEMORRHAGE [None]
